FAERS Safety Report 4773358-1 (Version None)
Quarter: 2005Q3

REPORT INFORMATION
  Report Type: 
  Country: None (occurrence: None)
  Receive Date: 20050916
  Receipt Date: 20050907
  Transmission Date: 20060218
  Serious: Yes (Life-Threatening, Hospitalization)
  Sender: FDA-Public Use
  Company Number: HQWYE607223JUN04

PATIENT
  Age: 3 Year
  Sex: Male
  Weight: 13.3 kg

DRUGS (6)
  1. RAPAMUNE [Suspect]
     Indication: RENAL TRANSPLANT
     Dosage: 1.5 MG 1X PER 1 DAY, ORAL; 1 MG 1X PER 1 DAY, ORAL
     Route: 048
     Dates: start: 20031104
  2. TACROLIMUS (TACROLIMUS) [Concomitant]
  3. SULFAMETHOXAZOLE + TRIMETHOPRIM [Concomitant]
  4. AMLODIPINE [Concomitant]
  5. IRON (IRON) [Concomitant]
  6. PRAVASTATIN [Concomitant]

REACTIONS (13)
  - ADENOVIRUS INFECTION [None]
  - BLOOD PRESSURE INCREASED [None]
  - BODY TEMPERATURE INCREASED [None]
  - CARDIOMEGALY [None]
  - CIRCULATORY COLLAPSE [None]
  - CULTURE STOOL POSITIVE [None]
  - ELECTROCARDIOGRAM T WAVE ABNORMAL [None]
  - JUGULAR VEIN DISTENSION [None]
  - LIVER PALPABLE SUBCOSTAL [None]
  - LUNG INFILTRATION [None]
  - PERICARDIAL EFFUSION [None]
  - PLATELET COUNT INCREASED [None]
  - SINUS TACHYCARDIA [None]
